FAERS Safety Report 15698789 (Version 1)
Quarter: 2018Q4

REPORT INFORMATION
  Report Type: Spontaneous
  Country: RU (occurrence: RU)
  Receive Date: 20181207
  Receipt Date: 20181207
  Transmission Date: 20190205
  Serious: Yes (Other)
  Sender: FDA-Public Use
  Company Number: RU-ASTRAZENECA-2017SE25532

PATIENT
  Age: 43 Year
  Sex: Female
  Weight: 92 kg

DRUGS (2)
  1. FORXIGA [Suspect]
     Active Substance: DAPAGLIFLOZIN
     Indication: METABOLIC SYNDROME
     Route: 048
     Dates: start: 2016, end: 2017
  2. FORXIGA [Suspect]
     Active Substance: DAPAGLIFLOZIN
     Indication: METABOLIC SYNDROME
     Route: 048

REACTIONS (5)
  - Intentional product misuse [Not Recovered/Not Resolved]
  - Product use in unapproved indication [Unknown]
  - Off label use [Unknown]
  - Cervix carcinoma [Not Recovered/Not Resolved]
  - Pruritus genital [Recovered/Resolved]
